FAERS Safety Report 7599221-9 (Version None)
Quarter: 2011Q3

REPORT INFORMATION
  Report Type: 
  Country: None (occurrence: None)
  Receive Date: 20110711
  Receipt Date: 20110628
  Transmission Date: 20111222
  Serious: Yes (Hospitalization, Other)
  Sender: FDA-Public Use
  Company Number: FI-BAYER-2011-055198

PATIENT
  Age: 45 Year
  Sex: Female

DRUGS (2)
  1. MIGARD [FROVATRIPTAN] [Suspect]
     Indication: MIGRAINE
     Dosage: 2.5 MG, PRN
     Route: 048
     Dates: start: 20080101, end: 20110404
  2. MIRENA [Suspect]
     Indication: HORMONE REPLACEMENT THERAPY
     Dosage: 20 ?G/D, CONT
     Route: 015
     Dates: start: 20070101, end: 20110404

REACTIONS (3)
  - BLOOD PRESSURE INCREASED [None]
  - HYPERALDOSTERONISM [None]
  - MIGRAINE [None]
